FAERS Safety Report 14453997 (Version 1)
Quarter: 2018Q1

REPORT INFORMATION
  Report Type: Spontaneous
  Country: US (occurrence: US)
  Receive Date: 20180129
  Receipt Date: 20180129
  Transmission Date: 20180509
  Serious: No
  Sender: FDA-Public Use
  Company Number: US-ALLERGAN-1722976US

PATIENT
  Sex: Female

DRUGS (1)
  1. TAZORAC [Suspect]
     Active Substance: TAZAROTENE
     Indication: PRECANCEROUS SKIN LESION
     Dosage: UNK UNK, QD, IN THE MORNING
     Route: 061

REACTIONS (2)
  - Off label use [Unknown]
  - Pruritus [Unknown]
